FAERS Safety Report 5722644-7 (Version None)
Quarter: 2008Q2

REPORT INFORMATION
  Report Type: 
  Country: None (occurrence: None)
  Receive Date: 20080429
  Receipt Date: 20071003
  Transmission Date: 20081010
  Serious: Yes (Disabling)
  Sender: FDA-Public Use
  Company Number: US-ASTRAZENECA-2007UW23196

PATIENT
  Age: 11 Year
  Sex: Female

DRUGS (5)
  1. NEXIUM [Suspect]
     Dates: start: 20070828
  2. SINGULAIR [Concomitant]
     Dates: start: 20070803
  3. FLONASE [Concomitant]
     Dates: start: 20070803
  4. ZYRTEC [Concomitant]
     Dates: start: 20070803
  5. DETROL [Concomitant]
     Dates: start: 20070803

REACTIONS (1)
  - HALLUCINATION [None]
